FAERS Safety Report 5581700-7 (Version None)
Quarter: 2008Q1

REPORT INFORMATION
  Report Type: 
  Country: None (occurrence: None)
  Receive Date: 20080104
  Receipt Date: 20071226
  Transmission Date: 20080703
  Serious: Yes (Death)
  Sender: FDA-Public Use
  Company Number: JP-JNJFOC-20071204966

PATIENT
  Sex: Male

DRUGS (17)
  1. FINIBAX [Suspect]
     Indication: PNEUMONIA
     Route: 041
  2. PL [Concomitant]
     Indication: NASOPHARYNGITIS
     Route: 048
  3. DASEN [Concomitant]
     Route: 048
  4. DASEN [Concomitant]
     Indication: UPPER RESPIRATORY TRACT INFLAMMATION
     Route: 048
  5. KLARICID [Concomitant]
     Route: 048
  6. KLARICID [Concomitant]
     Indication: UPPER RESPIRATORY TRACT INFLAMMATION
     Route: 048
  7. MEROPEN [Concomitant]
     Indication: PNEUMONIA
     Route: 041
  8. MYSLEE [Concomitant]
     Route: 065
  9. TENORMIN [Concomitant]
     Route: 065
  10. NORVASC [Concomitant]
     Route: 065
  11. FLIVAS [Concomitant]
     Route: 065
  12. LOXONIN [Concomitant]
     Indication: ORTHOPEDIC PROCEDURE
     Route: 065
  13. MUCOSTA [Concomitant]
     Indication: ORTHOPEDIC PROCEDURE
     Route: 065
  14. COUGHNOL [Concomitant]
     Indication: NASOPHARYNGITIS
     Route: 065
  15. SALOBEL [Concomitant]
     Indication: HYPERURICAEMIA
     Route: 065
  16. BELLAMITOL [Concomitant]
     Indication: NASOPHARYNGITIS
     Route: 048
  17. ANTITUSSIVES [Concomitant]
     Indication: NASOPHARYNGITIS
     Route: 048

REACTIONS (1)
  - PNEUMONIA [None]
